FAERS Safety Report 24281880 (Version 1)
Quarter: 2024Q3

REPORT INFORMATION
  Report Type: Report from Study
  Country: US (occurrence: US)
  Receive Date: 20240904
  Receipt Date: 20240904
  Transmission Date: 20241017
  Serious: Yes (Other)
  Sender: ABBVIE
  Company Number: US-ABBVIE-5772181

PATIENT
  Age: 61 Year
  Sex: Male
  Weight: 79 kg

DRUGS (18)
  1. HUMIRA [Suspect]
     Active Substance: ADALIMUMAB
     Indication: Psoriatic arthropathy
     Dosage: FORM STRENGTH: 40 MILLIGRAM, CITRATE FREE
     Route: 058
     Dates: start: 20190501, end: 202312
  2. HUMIRA [Suspect]
     Active Substance: ADALIMUMAB
     Indication: Psoriasis
     Dosage: FORM STRENGTH: 40 MILLIGRAM 40MG/0.8ML
     Route: 058
     Dates: start: 2024
  3. HUMIRA [Suspect]
     Active Substance: ADALIMUMAB
     Indication: Psoriatic arthropathy
     Dosage: FORM STRENGTH: 40 MILLIGRAM, CITRATE FREE
     Route: 058
  4. HUMIRA [Suspect]
     Active Substance: ADALIMUMAB
     Indication: Psoriasis
  5. HYDROXYCHLOROQUINE [Concomitant]
     Active Substance: HYDROXYCHLOROQUINE
     Indication: Psoriatic arthropathy
  6. FENOFIBRATE [Concomitant]
     Active Substance: FENOFIBRATE
     Indication: Blood cholesterol
  7. METOPROLOL [Concomitant]
     Active Substance: METOPROLOL
     Indication: Blood pressure measurement
  8. AMLODIPINE [Concomitant]
     Active Substance: AMLODIPINE BESYLATE
     Indication: Blood pressure measurement
  9. LISINOPRIL [Concomitant]
     Active Substance: LISINOPRIL
     Indication: Blood pressure measurement
  10. LEVOTHYROXINE SODIUM [Concomitant]
     Active Substance: LEVOTHYROXINE SODIUM
     Indication: Thyroid disorder
  11. METHOTREXATE [Concomitant]
     Active Substance: METHOTREXATE
     Indication: Psoriatic arthropathy
  12. FOLIC ACID [Concomitant]
     Active Substance: FOLIC ACID
     Indication: Psoriatic arthropathy
     Dosage: FOLIC ACID 7 1MG (7MG TOTAL)
  13. LEFLUNOMIDE [Concomitant]
     Active Substance: LEFLUNOMIDE
     Indication: Psoriatic arthropathy
  14. Modern COVID 19 vaccine [Concomitant]
     Indication: COVID-19 immunisation
     Dosage: COVID 19 MRNA LNP-S PF 100MG
     Route: 030
     Dates: start: 20210402, end: 20210402
  15. Modern COVID 19 vaccine [Concomitant]
     Indication: COVID-19 immunisation
     Dosage: COVID 19 MRNA LNP-S PF 100MG
     Route: 030
     Dates: start: 20210430, end: 20210430
  16. Modern COVID 19 vaccine [Concomitant]
     Indication: COVID-19 immunisation
     Dosage: COVID 19 MRNA LNP-S PF 100MG BOOSTER
     Route: 030
     Dates: start: 20211120, end: 20211120
  17. Modern COVID 19 vaccine [Concomitant]
     Indication: COVID-19 immunisation
     Dosage: COVID 19 MRNA LNP-S PF 100MG BOOSTER
     Route: 030
     Dates: start: 20220418, end: 20220418
  18. Modern COVID 19 vaccine [Concomitant]
     Indication: COVID-19 immunisation
     Dosage: COVID 19 MRNA LNP-S PF 100MG BOOSTER
     Route: 030
     Dates: start: 20221111, end: 20221111

REACTIONS (15)
  - Spinal stenosis [Not Recovered/Not Resolved]
  - Joint swelling [Recovering/Resolving]
  - Infected seroma [Recovered/Resolved]
  - Lymphoma [Unknown]
  - Psoriatic arthropathy [Recovering/Resolving]
  - Balance disorder [Unknown]
  - Seroma [Unknown]
  - Bacterial test positive [Unknown]
  - Gait inability [Unknown]
  - Urinary incontinence [Unknown]
  - SARS-CoV-2 test positive [Recovering/Resolving]
  - Muscular weakness [Unknown]
  - Hyperthyroidism [Unknown]
  - Benign neoplasm of thyroid gland [Unknown]
  - Anal incontinence [Unknown]

NARRATIVE: CASE EVENT DATE: 20210401
